FAERS Safety Report 6575017-1 (Version None)
Quarter: 2010Q1

REPORT INFORMATION
  Report Type: 
  Country: None (occurrence: None)
  Receive Date: 20100201
  Receipt Date: 20100113
  Transmission Date: 20100710
  Serious: Yes (Hospitalization)
  Sender: FDA-Public Use
  Company Number: FKO201000013

PATIENT
  Age: 63 Year
  Sex: Female

DRUGS (3)
  1. FLUOROURACIL (MANUFACTURER UNKNOWN) [Suspect]
     Indication: COLORECTAL CANCER
     Dosage: (400 MG/M2), INTRAVENOUS (NOT OTHERWISE SPECIFIED)
     Route: 042
     Dates: start: 20061206
  2. ELOXATIN [Concomitant]
  3. PANITUMUMAB         (PANITUMUMAB) [Concomitant]

REACTIONS (2)
  - DEVICE RELATED INFECTION [None]
  - NEUTROPENIA [None]
